FAERS Safety Report 25043092 (Version 5)
Quarter: 2025Q2

REPORT INFORMATION
  Report Type: Report from Study
  Country: ES (occurrence: ES)
  Receive Date: 20250305
  Receipt Date: 20250409
  Transmission Date: 20250716
  Serious: Yes (Other)
  Sender: ABBVIE
  Company Number: ES-ABBVIE-6162216

PATIENT
  Age: 80 Year
  Sex: Female

DRUGS (1)
  1. FOSCARBIDOPA\FOSLEVODOPA [Suspect]
     Active Substance: FOSCARBIDOPA\FOSLEVODOPA
     Indication: Parkinson^s disease
     Route: 058
     Dates: start: 20250205

REACTIONS (6)
  - Vomiting [Recovered/Resolved]
  - Puncture site pain [Not Recovered/Not Resolved]
  - Disorientation [Recovering/Resolving]
  - Decreased appetite [Unknown]
  - Nausea [Unknown]
  - Abdominal pain [Not Recovered/Not Resolved]

NARRATIVE: CASE EVENT DATE: 20250101
